FAERS Safety Report 14898481 (Version 2)
Quarter: 2018Q3

REPORT INFORMATION
  Report Type: Spontaneous
  Country: US (occurrence: US)
  Receive Date: 20180515
  Receipt Date: 20180711
  Transmission Date: 20181010
  Serious: Yes (Hospitalization, Other)
  Sender: FDA-Public Use
  Company Number: US-BAYER-2018-088485

PATIENT
  Age: 77 Year
  Sex: Male

DRUGS (2)
  1. ALEVE [Suspect]
     Active Substance: NAPROXEN SODIUM
  2. HUMIRA [Suspect]
     Active Substance: ADALIMUMAB
     Indication: RHEUMATOID ARTHRITIS
     Dosage: 40 MG, 1 IN 2 WEEKS
     Route: 058
     Dates: start: 2016

REACTIONS (14)
  - Pain in extremity [None]
  - Chest X-ray abnormal [Not Recovered/Not Resolved]
  - Weight fluctuation [Not Recovered/Not Resolved]
  - Organising pneumonia [Recovering/Resolving]
  - Sensitivity to weather change [Not Recovered/Not Resolved]
  - Dyspnoea exertional [Recovered/Resolved]
  - Respiratory disorder [Recovering/Resolving]
  - Ulcer haemorrhage [Recovered/Resolved]
  - Musculoskeletal stiffness [Not Recovered/Not Resolved]
  - Pruritus [Unknown]
  - Drug effect incomplete [Unknown]
  - Pneumonia [Recovered/Resolved]
  - Lower respiratory tract infection [Unknown]
  - Arthralgia [Unknown]

NARRATIVE: CASE EVENT DATE: 2016
